FAERS Safety Report 9664546 (Version 1)
Quarter: 2013Q4

REPORT INFORMATION
  Report Type: Spontaneous
  Country: FR (occurrence: FR)
  Receive Date: 20131101
  Receipt Date: 20131101
  Transmission Date: 20140711
  Serious: Yes (Hospitalization)
  Sender: FDA-Public Use
  Company Number: FR-ROCHE-1297238

PATIENT
  Age: 32 Year
  Sex: Female

DRUGS (10)
  1. VEMURAFENIB [Suspect]
     Indication: MALIGNANT MELANOMA
     Dosage: 240 MG
     Route: 048
     Dates: start: 20130605
  2. VEMURAFENIB [Suspect]
     Route: 048
     Dates: start: 20130709
  3. KARDEGIC [Concomitant]
  4. CANDESARTAN [Concomitant]
  5. DIAMICRON [Concomitant]
  6. EUPRESSYL [Concomitant]
  7. CRESTOR [Concomitant]
  8. OMEPRAZOLE [Concomitant]
  9. ARIXTRA [Concomitant]
  10. RISEDRONATE [Concomitant]

REACTIONS (1)
  - Renal failure acute [Unknown]
